FAERS Safety Report 8951658 (Version 1)
Quarter: 2012Q4

REPORT INFORMATION
  Report Type: 
  Country: US (occurrence: US)
  Receive Date: 20121204
  Receipt Date: 20121204
  Transmission Date: 20130627
  Serious: Yes (Other)
  Sender: FDA-Public Use
  Company Number: US-BAXTER-2012BAX026004

PATIENT
  Sex: Female

DRUGS (3)
  1. CYTOXAN TABLETS (CYCLOPHOSPHAMIDE TABLETS, USP) [Suspect]
     Indication: ADVANCED BREAST CANCER
     Route: 048
  2. VANDETANIB [Suspect]
     Indication: ADVANCED BREAST CANCER
  3. METHOTREXATE [Suspect]
     Indication: ADVANCED BREAST CANCER
     Route: 048

REACTIONS (1)
  - Pulmonary embolism [Unknown]
